FAERS Safety Report 25700513 (Version 1)
Quarter: 2025Q3

REPORT INFORMATION
  Report Type: Spontaneous
  Country: US (occurrence: US)
  Receive Date: 20250819
  Receipt Date: 20250819
  Transmission Date: 20251020
  Serious: No
  Sender: BAYER HEALTHCARE LLC
  Company Number: US-BAYER-2025A108137

PATIENT
  Age: 71 Year
  Sex: Female

DRUGS (2)
  1. ASTEPRO [Suspect]
     Active Substance: AZELASTINE HYDROCHLORIDE
     Indication: Prophylaxis
     Dosage: 1 PUFF(S), QD, EACH NOSTRIL
     Route: 045
     Dates: start: 20250801
  2. ASTEPRO ALLERGY [Suspect]
     Active Substance: AZELASTINE HYDROCHLORIDE
     Indication: Prophylaxis
     Dosage: 1 PUFF(S), QD, EACH NOSTRIL
     Route: 045
     Dates: start: 20250801

REACTIONS (1)
  - Drug effective for unapproved indication [Recovered/Resolved]

NARRATIVE: CASE EVENT DATE: 20250801
